FAERS Safety Report 22239507 (Version 9)
Quarter: 2024Q4

REPORT INFORMATION
  Report Type: Spontaneous
  Country: US (occurrence: US)
  Receive Date: 20230421
  Receipt Date: 20241016
  Transmission Date: 20250115
  Serious: No
  Sender: BIOGEN
  Company Number: US-BIOGEN-2023BI01200117

PATIENT
  Sex: Male

DRUGS (7)
  1. TYSABRI [Suspect]
     Active Substance: NATALIZUMAB
     Indication: Multiple sclerosis
     Route: 050
     Dates: start: 20230415
  2. IBUPROFEN [Concomitant]
     Active Substance: IBUPROFEN
     Route: 050
  3. ALEVE [Concomitant]
     Active Substance: NAPROXEN SODIUM
     Route: 050
  4. GUAIFENESIN [Concomitant]
     Active Substance: GUAIFENESIN
     Route: 050
  5. CODEINE [Concomitant]
     Active Substance: CODEINE
     Route: 050
  6. VITAMIN D3 [Concomitant]
     Active Substance: CHOLECALCIFEROL
     Route: 050
  7. VITAMIN B12 [Concomitant]
     Active Substance: CYANOCOBALAMIN
     Route: 050

REACTIONS (11)
  - Musculoskeletal stiffness [Not Recovered/Not Resolved]
  - Joint stiffness [Unknown]
  - Hypoaesthesia [Unknown]
  - Insomnia [Unknown]
  - Diplopia [Unknown]
  - Nephrolithiasis [Unknown]
  - Dysphemia [Unknown]
  - Fatigue [Unknown]
  - Arthralgia [Unknown]
  - Dizziness [Unknown]
  - Headache [Recovered/Resolved]

NARRATIVE: CASE EVENT DATE: 20230101
